FAERS Safety Report 11291795 (Version 1)
Quarter: 2015Q3

REPORT INFORMATION
  Report Type: Spontaneous
  Country: IT (occurrence: IT)
  Receive Date: 20150722
  Receipt Date: 20150722
  Transmission Date: 20151125
  Serious: Yes (Hospitalization)
  Sender: FDA-Public Use
  Company Number: IT-JNJFOC-20150709816

PATIENT
  Age: 66 Year
  Sex: Female

DRUGS (3)
  1. DEPALGOS [Suspect]
     Active Substance: ACETAMINOPHEN\OXYCODONE HYDROCHLORIDE
     Indication: OSTEOARTHRITIS
     Route: 048
     Dates: start: 20150101, end: 20150601
  2. FENTANYL TRANSDERMAL SYSTEM [Suspect]
     Active Substance: FENTANYL
     Indication: OSTEOARTHRITIS
     Route: 062
  3. FENTANYL TRANSDERMAL SYSTEM [Suspect]
     Active Substance: FENTANYL
     Indication: OSTEOARTHRITIS
     Route: 062
     Dates: start: 20150101, end: 20150601

REACTIONS (5)
  - Cold sweat [Unknown]
  - Sopor [Unknown]
  - Dry mouth [Unknown]
  - Somnolence [Unknown]
  - Nausea [Unknown]

NARRATIVE: CASE EVENT DATE: 20150601
